FAERS Safety Report 12728602 (Version 10)
Quarter: 2017Q4

REPORT INFORMATION
  Report Type: Report from Study
  Country: IQ (occurrence: IQ)
  Receive Date: 20160909
  Receipt Date: 20171113
  Transmission Date: 20180320
  Serious: Yes (Hospitalization, Other)
  Sender: FDA-Public Use
  Company Number: PHHY2016IQ124212

PATIENT
  Sex: Female
  Weight: 123 kg

DRUGS (2)
  1. GLIVEC [Suspect]
     Active Substance: IMATINIB MESYLATE
     Indication: CHRONIC MYELOID LEUKAEMIA
     Dosage: 400 MG, QD
     Route: 048
     Dates: start: 2013
  2. GLIVEC [Suspect]
     Active Substance: IMATINIB MESYLATE
     Dosage: 200 MG, QD
     Route: 048

REACTIONS (30)
  - Vomiting [Not Recovered/Not Resolved]
  - Dysuria [Not Recovered/Not Resolved]
  - Thyroid disorder [Unknown]
  - Nephrolithiasis [Unknown]
  - Abdominal pain upper [Not Recovered/Not Resolved]
  - Arthralgia [Unknown]
  - Decreased appetite [Unknown]
  - Ovarian cyst [Not Recovered/Not Resolved]
  - Overweight [Recovering/Resolving]
  - Tremor [Not Recovered/Not Resolved]
  - Fatigue [Not Recovered/Not Resolved]
  - Face oedema [Not Recovered/Not Resolved]
  - Flank pain [Unknown]
  - Angina pectoris [Unknown]
  - Eating disorder [Unknown]
  - Hyperglycaemia [Not Recovered/Not Resolved]
  - Eye oedema [Not Recovered/Not Resolved]
  - Dizziness [Not Recovered/Not Resolved]
  - Eyelid oedema [Not Recovered/Not Resolved]
  - Weight increased [Unknown]
  - Oedema peripheral [Not Recovered/Not Resolved]
  - Generalised oedema [Not Recovered/Not Resolved]
  - Malaise [Unknown]
  - Anaemia [Unknown]
  - Blood iron decreased [Unknown]
  - Dyslipidaemia [Not Recovered/Not Resolved]
  - Hypertension [Recovering/Resolving]
  - Gait disturbance [Unknown]
  - Back pain [Unknown]
  - Oedema [Not Recovered/Not Resolved]
